FAERS Safety Report 25222933 (Version 2)
Quarter: 2025Q2

REPORT INFORMATION
  Report Type: Report from Study
  Country: US (occurrence: US)
  Receive Date: 20250422
  Receipt Date: 20250425
  Transmission Date: 20250717
  Serious: Yes (Other)
  Sender: BRISTOL-MYERS SQUIBB COMPANY
  Company Number: US-BRISTOL-MYERS SQUIBB COMPANY-2025-058820

PATIENT
  Age: 89 Year
  Sex: Male
  Weight: 66.68 kg

DRUGS (1)
  1. ELIQUIS [Suspect]
     Active Substance: APIXABAN
     Indication: Heart valve replacement
     Route: 048

REACTIONS (4)
  - Dizziness [Unknown]
  - Syncope [Unknown]
  - Dyspnoea [Unknown]
  - Off label use [Unknown]
